FAERS Safety Report 10883581 (Version 1)
Quarter: 2015Q1

REPORT INFORMATION
  Report Type: Report from Study
  Country: US (occurrence: US)
  Receive Date: 20150303
  Receipt Date: 20150303
  Transmission Date: 20150721
  Serious: Yes (Death)
  Sender: FDA-Public Use
  Company Number: US-INTERMUNE, INC.-201502IM010548

PATIENT
  Age: 63 Year
  Sex: Female

DRUGS (32)
  1. DIOVAN HCT [Concomitant]
     Active Substance: HYDROCHLOROTHIAZIDE\VALSARTAN
  2. REGLAN [Concomitant]
     Active Substance: METOCLOPRAMIDE HYDROCHLORIDE
  3. MORPHINE [Concomitant]
     Active Substance: MORPHINE
  4. ZOCOR [Concomitant]
     Active Substance: SIMVASTATIN
  5. RANEXA [Concomitant]
     Active Substance: RANOLAZINE
  6. LASIX [Concomitant]
     Active Substance: FUROSEMIDE
  7. PLAVIX [Concomitant]
     Active Substance: CLOPIDOGREL BISULFATE
  8. FUROSEMIDE. [Concomitant]
     Active Substance: FUROSEMIDE
  9. TRAZODONE [Concomitant]
     Active Substance: TRAZODONE HYDROCHLORIDE
  10. CEFTRIAXONE. [Concomitant]
     Active Substance: CEFTRIAXONE
  11. LEVOFLOXACIN. [Concomitant]
     Active Substance: LEVOFLOXACIN
  12. APAP [Concomitant]
     Active Substance: ACETAMINOPHEN
  13. GLUCOSE [Concomitant]
     Active Substance: DEXTROSE
  14. ALBUTEROL. [Concomitant]
     Active Substance: ALBUTEROL
  15. ABILIFY [Concomitant]
     Active Substance: ARIPIPRAZOLE
  16. ENOXAPARIN [Concomitant]
     Active Substance: ENOXAPARIN
  17. ZOFRAN [Concomitant]
     Active Substance: ONDANSETRON HYDROCHLORIDE
  18. NEURONTIN [Concomitant]
     Active Substance: GABAPENTIN
  19. NITROSTAT [Concomitant]
     Active Substance: NITROGLYCERIN
  20. NACL [Concomitant]
     Active Substance: SODIUM CHLORIDE
  21. DOCUSATE [Concomitant]
     Active Substance: DOCUSATE
  22. LEXAPRO [Concomitant]
     Active Substance: ESCITALOPRAM OXALATE
  23. ASPIRIN. [Concomitant]
     Active Substance: ASPIRIN
  24. PROPOFOL. [Concomitant]
     Active Substance: PROPOFOL
  25. HUMULIN R [Concomitant]
     Active Substance: INSULIN HUMAN
  26. POTASSIUM [Concomitant]
     Active Substance: POTASSIUM
  27. VERAPAMIL [Concomitant]
     Active Substance: VERAPAMIL HYDROCHLORIDE
  28. ESBRIET [Suspect]
     Active Substance: PIRFENIDONE
     Route: 048
     Dates: start: 201412
  29. METFORMIN [Concomitant]
     Active Substance: METFORMIN HYDROCHLORIDE
  30. NORCO [Concomitant]
     Active Substance: ACETAMINOPHEN\HYDROCODONE BITARTRATE
  31. PRANDIN [Concomitant]
     Active Substance: REPAGLINIDE
  32. PANTOPRAZOLE [Concomitant]
     Active Substance: PANTOPRAZOLE SODIUM

REACTIONS (1)
  - Death [Fatal]

NARRATIVE: CASE EVENT DATE: 201501
